FAERS Safety Report 21407080 (Version 1)
Quarter: 2022Q4

REPORT INFORMATION
  Report Type: Spontaneous
  Country: US (occurrence: None)
  Receive Date: 20221003
  Receipt Date: 20221003
  Transmission Date: 20230113
  Serious: Yes (unspecified)
  Sender: FDA-Public Use
  Company Number: None

PATIENT
  Age: 63 Year
  Sex: Male
  Weight: 65 kg

DRUGS (3)
  1. PACLITAXEL [Suspect]
     Active Substance: PACLITAXEL
     Indication: Non-small cell lung cancer
     Dosage: FREQUENCY : ONCE;?
     Route: 041
     Dates: start: 20221003, end: 20221003
  2. Diphenhydramine 25 mg IVP [Concomitant]
     Dates: start: 20221003, end: 20221003
  3. Hydrocortisone 100 mg IVP [Concomitant]
     Dates: start: 20221003, end: 20221003

REACTIONS (3)
  - Dyspnoea [None]
  - Throat tightness [None]
  - Infusion related reaction [None]

NARRATIVE: CASE EVENT DATE: 20221003
